FAERS Safety Report 18573522 (Version 1)
Quarter: 2020Q4

REPORT INFORMATION
  Report Type: Spontaneous
  Country: US (occurrence: US)
  Receive Date: 20201203
  Receipt Date: 20201203
  Transmission Date: 20210114
  Serious: No
  Sender: FDA-Public Use
  Company Number: US-AJANTA PHARMA USA INC.-2096609

PATIENT
  Age: 80 Year
  Sex: Female
  Weight: 72.73 kg

DRUGS (1)
  1. OXYBUTYNIN CHLORIDE (ANDA 211655) [Suspect]
     Active Substance: OXYBUTYNIN CHLORIDE
     Indication: HYPERTONIC BLADDER
     Dates: start: 20200930

REACTIONS (1)
  - Drug ineffective [Unknown]
